FAERS Safety Report 9713774 (Version 1)
Quarter: 2013Q4

REPORT INFORMATION
  Report Type: Spontaneous
  Country: US (occurrence: None)
  Receive Date: 20131125
  Receipt Date: 20131125
  Transmission Date: 20140711
  Serious: Yes (Hospitalization)
  Sender: FDA-Public Use
  Company Number: None

PATIENT
  Age: 35 Year
  Sex: Male
  Weight: 106 kg

DRUGS (2)
  1. DAPTOMYCIN [Suspect]
     Indication: DIABETIC FOOT
     Route: 042
     Dates: start: 20131015, end: 20131027
  2. DAPTOMYCIN [Suspect]
     Indication: OSTEOMYELITIS
     Route: 042
     Dates: start: 20131015, end: 20131027

REACTIONS (2)
  - Respiratory distress [None]
  - Blood creatinine increased [None]
